FAERS Safety Report 20179286 (Version 3)
Quarter: 2022Q1

REPORT INFORMATION
  Report Type: Report from Study
  Country: MX (occurrence: MX)
  Receive Date: 20211214
  Receipt Date: 20220324
  Transmission Date: 20220423
  Serious: Yes (Other)
  Sender: FDA-Public Use
  Company Number: MX-NOVARTISPH-NVSC2021MX284404

PATIENT
  Age: 77 Year
  Sex: Female
  Weight: 66 kg

DRUGS (7)
  1. ENTRESTO [Suspect]
     Active Substance: SACUBITRIL\VALSARTAN
     Indication: Cardiac disorder
     Dosage: 1 DOSAGE FORM, BID (100MG, STOPPED 1 WEEEK AGO)
     Route: 048
     Dates: start: 2017
  2. ENTRESTO [Suspect]
     Active Substance: SACUBITRIL\VALSARTAN
     Indication: Cardiac failure
     Dosage: 1 DOSAGE FORM, Q12H (100 MG)
     Route: 048
     Dates: start: 201809
  3. ENTRESTO [Suspect]
     Active Substance: SACUBITRIL\VALSARTAN
     Indication: Vein disorder
  4. CRESTOR [Suspect]
     Active Substance: ROSUVASTATIN CALCIUM
     Indication: Product used for unknown indication
     Dosage: 1 DOSAGE FORM (10MG, STARTED 1 YEAR AGO)
     Route: 048
  5. XARELTO [Concomitant]
     Active Substance: RIVAROXABAN
     Indication: Product used for unknown indication
     Dosage: 1 DOSAGE FORM, BID (2.5MG)
     Route: 048
     Dates: start: 202102
  6. ASPIRIN [Concomitant]
     Active Substance: ASPIRIN
     Dosage: 1 DOSAGE FORM, QD (100MG STARTED 18 YEARS AGO)
     Route: 048
  7. NEXIUM [Concomitant]
     Active Substance: ESOMEPRAZOLE MAGNESIUM
     Indication: Dyspepsia
     Dosage: 1 DOSAGE FORM, QD (40MG, STARTED 1 YEAR AGO)
     Route: 048

REACTIONS (6)
  - Blindness [Not Recovered/Not Resolved]
  - Feeling abnormal [Recovered/Resolved]
  - Gastritis [Not Recovered/Not Resolved]
  - Urticaria [Recovering/Resolving]
  - Abdominal discomfort [Not Recovered/Not Resolved]
  - Product use in unapproved indication [Unknown]

NARRATIVE: CASE EVENT DATE: 20190801
